FAERS Safety Report 8974834 (Version 1)
Quarter: 2012Q4

REPORT INFORMATION
  Report Type: 
  Country: US (occurrence: US)
  Receive Date: 20121220
  Receipt Date: 20121220
  Transmission Date: 20130627
  Serious: Yes (Other)
  Sender: FDA-Public Use
  Company Number: US-BAYER-2012-133449

PATIENT
  Age: 73 Year
  Sex: Male
  Weight: 83.92 kg

DRUGS (6)
  1. XARELTO [Suspect]
     Indication: CEREBROVASCULAR ACCIDENT PROPHYLAXIS
     Dosage: 20 mg, QD
     Route: 048
     Dates: start: 20121205, end: 201212
  2. XARELTO [Suspect]
     Indication: ATRIAL FLUTTER
  3. ACETYLSALICYLIC ACID({=100 MG) [Suspect]
  4. METFORMIN [Concomitant]
     Indication: DIABETES
     Route: 048
  5. GLIPIZIDE [Concomitant]
     Indication: DIABETES
     Route: 048
  6. CARDIZEM [Concomitant]
     Route: 048

REACTIONS (2)
  - Blood urine present [Recovered/Resolved]
  - Melaena [Recovered/Resolved]
